FAERS Safety Report 7932326-9 (Version None)
Quarter: 2011Q4

REPORT INFORMATION
  Report Type: 
  Country: None (occurrence: None)
  Receive Date: 20111121
  Receipt Date: 20111117
  Transmission Date: 20120403
  Serious: Yes (Disabling, Other)
  Sender: FDA-Public Use
  Company Number: GB-MERCK-1108GBR00106

PATIENT
  Age: 80 Year
  Sex: Female

DRUGS (5)
  1. ZOCOR [Suspect]
     Route: 048
     Dates: end: 20110726
  2. FELODIPINE [Concomitant]
     Route: 048
     Dates: start: 20070101
  3. ALENDRONATE SODIUM [Concomitant]
     Route: 048
  4. ASPIRIN [Concomitant]
     Route: 048
  5. PERINDOPRIL [Concomitant]
     Route: 065
     Dates: start: 20070101

REACTIONS (1)
  - HYPOKALAEMIA [None]
